FAERS Safety Report 9820191 (Version 1)
Quarter: 2013Q4

REPORT INFORMATION
  Report Type: Spontaneous
  Country: US (occurrence: None)
  Receive Date: 20131024
  Receipt Date: 20131024
  Transmission Date: 20140711
  Serious: Yes (Hospitalization, Other)
  Sender: FDA-Public Use
  Company Number: 2013-01355

PATIENT
  Age: 30 Year
  Sex: Female

DRUGS (9)
  1. QUETIAPINE [Suspect]
     Indication: DELIRIUM
     Dosage: 12.5MG IN THE MORNING, 12.5MG IN AFTERNOON AND 25MG AT BEDTIME, (3 IN 1 D)
  2. QUETIAPINE [Suspect]
     Indication: ANXIETY
     Dosage: 12.5MG IN THE MORNING, 12.5MG IN AFTERNOON AND 25MG AT BEDTIME, (3 IN 1 D)
  3. NIMODIPINE [Concomitant]
  4. PRAVASTATIN [Concomitant]
  5. DEXAMETHASONE [Concomitant]
  6. PROPOFOL [Concomitant]
  7. FENTANYL [Concomitant]
  8. CLONAZEPAM [Concomitant]
  9. LEVETIRACETAM (LEVETIRACETAM) [Concomitant]

REACTIONS (2)
  - Leukopenia [None]
  - Neutropenia [None]
